FAERS Safety Report 23167366 (Version 5)
Quarter: 2024Q2

REPORT INFORMATION
  Report Type: Spontaneous
  Country: CA (occurrence: CA)
  Receive Date: 20231109
  Receipt Date: 20240416
  Transmission Date: 20240716
  Serious: Yes (Other)
  Sender: FDA-Public Use
  Company Number: CA-PFIZER INC-202300139744

PATIENT
  Age: 60 Year
  Sex: Female

DRUGS (2)
  1. RUXIENCE [Suspect]
     Active Substance: RITUXIMAB-PVVR
     Indication: Multiple sclerosis
     Dosage: 1000 MG, DAY 1 AND DAY 15 THEN ONE DOSE EVERY 6 MONTH
     Route: 042
     Dates: start: 20230920
  2. RUXIENCE [Suspect]
     Active Substance: RITUXIMAB-PVVR
     Dosage: 1000 MG, DAY 1 AND DAY 15 THEN ONE DOSE EVERY 6 MONTH
     Route: 042
     Dates: start: 20231004

REACTIONS (5)
  - Immunodeficiency [Unknown]
  - Flushing [Recovered/Resolved]
  - Nasopharyngitis [Not Recovered/Not Resolved]
  - Therapeutic response unexpected [Unknown]
  - Off label use [Unknown]

NARRATIVE: CASE EVENT DATE: 20230920
